FAERS Safety Report 8282059-7 (Version None)
Quarter: 2012Q2

REPORT INFORMATION
  Report Type: 
  Country: None (occurrence: None)
  Receive Date: 20120410
  Receipt Date: 20120305
  Transmission Date: 20120825
  Serious: Yes (Life-Threatening)
  Sender: FDA-Public Use
  Company Number: FR-REGULIS-0042

PATIENT
  Age: 1988 Day
  Sex: Female
  Weight: 20 kg

DRUGS (7)
  1. LEFLUNOMIDE: ORAL / LEFLUNOMIDE [Concomitant]
  2. VFEND: INTRAVENOUS (NOT OTHERWISE SPECIFIED) / VORICONAZOLE [Concomitant]
  3. FOSCAVIR [Suspect]
     Dosage: 2400, MG MILLIGRAM(S), 1, 1, DAYS	INTRAVENOUS (NOT OTHERWISE SPECIFIED)
     Route: 042
     Dates: start: 20120116, end: 20120125
  4. CYCLOSPORINE [Suspect]
     Indication: PROPHYLAXIS AGAINST TRANSPLANT REJECTION
     Dosage: 1.45, MG/KG MILLIGRAM(S)/KILOGRAM  INTRAVENOUS (NOT OTHERWISE SPECIFIED)
     Route: 042
     Dates: start: 20111215, end: 20120124
  5. MEROPENEM [Suspect]
     Dosage: 1200, MG MILLIGRAM(S), 1, 1, DAYS INTRAVENOUS (NOT OTHERWISE SPECIFIED)
     Route: 042
  6. TARGOCID [Suspect]
     Dosage: 200, MG MILLIGRAM(S), 1, 1, DAYS INTRAVENOUS (NOT OTHERWISE SPECIFIED)
     Route: 042
  7. FILGRASTIM: INTRAVENOUS (NOT OTHERWISE SPECIFIED) / FILGRASTIM [Concomitant]

REACTIONS (4)
  - HYPERTENSIVE ENCEPHALOPATHY [None]
  - CONVULSION [None]
  - ELECTROENCEPHALOGRAM ABNORMAL [None]
  - POSTERIOR REVERSIBLE ENCEPHALOPATHY SYNDROME [None]
